FAERS Safety Report 10146820 (Version 3)
Quarter: 2014Q2

REPORT INFORMATION
  Report Type: Report from Study
  Country: CA (occurrence: CA)
  Receive Date: 20140501
  Receipt Date: 20140509
  Transmission Date: 20141212
  Serious: Yes (Other)
  Sender: FDA-Public Use
  Company Number: CA-ABBVIE-14P-028-1228059-00

PATIENT
  Sex: Male

DRUGS (2)
  1. HUMIRA [Suspect]
     Indication: PRODUCT USED FOR UNKNOWN INDICATION
     Route: 058
     Dates: start: 20120821, end: 20140326
  2. HUMIRA [Suspect]
     Route: 058
     Dates: start: 20140410

REACTIONS (3)
  - Tooth loss [Recovered/Resolved]
  - Implant site haemorrhage [Recovered/Resolved]
  - Post procedural infection [Recovered/Resolved]
